FAERS Safety Report 8877824 (Version 1)
Quarter: 2012Q4

REPORT INFORMATION
  Report Type: Spontaneous
  Country: BE (occurrence: None)
  Receive Date: 20121026
  Receipt Date: 20121026
  Transmission Date: 20130627
  Serious: Yes (Death, Hospitalization)
  Sender: FDA-Public Use
  Company Number: 2012AP003443

PATIENT
  Age: 61 Year
  Sex: Female

DRUGS (9)
  1. ATORVASTATIN [Suspect]
     Indication: HYPERCHOLESTEROLEMIA
     Dosage: 10 MG;Unknown;QD
  2. NAPROXEN [Suspect]
     Dosage: 500 MG:Unknown
  3. NAPROXEN [Suspect]
     Dosage: 500 MG:Unknown
  4. METFORMIN (METFORMIN) [Concomitant]
  5. HYDROCHLOROTHIAZIDE/LISINOPRIL (HYDROCHLOROTHIAZIDE/LISINOPRIL) [Concomitant]
  6. TRAMADOL (TRAMADOL) [Concomitant]
  7. ALLOPURINOL (ALLOPURINOL) [Concomitant]
  8. RANITIDINE (RANITIDINE) [Concomitant]
  9. QUININE (QUININE) [Concomitant]

REACTIONS (6)
  - Toxic epidermal necrolysis [None]
  - Rhabdomyolysis [None]
  - Multi-organ failure [None]
  - Cardiac arrest [None]
  - Sinus tachycardia [None]
  - Disseminated intravascular coagulation [None]
